FAERS Safety Report 4319771-8 (Version None)
Quarter: 2004Q1

REPORT INFORMATION
  Report Type: 
  Country: None (occurrence: None)
  Receive Date: 20040319
  Receipt Date: 20040308
  Transmission Date: 20041129
  Serious: Yes (Life-Threatening, Hospitalization)
  Sender: FDA-Public Use
  Company Number: ES-GLAXOSMITHKLINE-B0326102A

PATIENT
  Age: 66 Year
  Sex: Female

DRUGS (4)
  1. AUGMENTIN [Suspect]
     Dosage: 600MG PER DAY
     Route: 042
     Dates: start: 20031130, end: 20031202
  2. ROCEFALIN [Concomitant]
     Route: 042
     Dates: start: 20031203, end: 20031216
  3. KLACID [Concomitant]
     Dosage: 1G PER DAY
     Route: 042
     Dates: start: 20031202, end: 20031210
  4. KLACID [Concomitant]
     Dosage: 1G PER DAY
     Route: 048
     Dates: start: 20031211, end: 20031216

REACTIONS (1)
  - RENAL FAILURE ACUTE [None]
